FAERS Safety Report 17901577 (Version 1)
Quarter: 2020Q2

REPORT INFORMATION
  Report Type: Spontaneous
  Country: CN (occurrence: CN)
  Receive Date: 20200616
  Receipt Date: 20200616
  Transmission Date: 20200714
  Serious: Yes (Other)
  Sender: FDA-Public Use
  Company Number: CN-PFIZER INC-2020231383

PATIENT
  Age: 57 Year
  Sex: Male
  Weight: 83 kg

DRUGS (2)
  1. RUI BO TE [Suspect]
     Active Substance: RABEPRAZOLE SODIUM
     Indication: GASTRIC PH DECREASED
     Dosage: 10 MG, 2X/DAY
     Route: 048
     Dates: start: 20200510, end: 20200518
  2. LIPITOR [Suspect]
     Active Substance: ATORVASTATIN CALCIUM
     Indication: LIPIDS INCREASED
     Dosage: 20 MG, 1X/DAY
     Route: 048
     Dates: start: 20200508, end: 20200518

REACTIONS (1)
  - Liver injury [Unknown]

NARRATIVE: CASE EVENT DATE: 20200514
